FAERS Safety Report 9787764 (Version 1)
Quarter: 2013Q4

REPORT INFORMATION
  Report Type: Spontaneous
  Country: US (occurrence: US)
  Receive Date: 20131230
  Receipt Date: 20131230
  Transmission Date: 20140711
  Serious: No
  Sender: FDA-Public Use
  Company Number: US-VERTEX PHARMACEUTICALS INC-2013-012069

PATIENT
  Age: 59 Year
  Sex: Male
  Weight: 86 kg

DRUGS (3)
  1. INCIVEK [Suspect]
     Indication: HEPATITIS C
     Dosage: 750 MG, TID
     Route: 048
     Dates: start: 20131114, end: 20131220
  2. PEGASYS [Suspect]
     Indication: HEPATITIS C
     Dosage: 180 ?G, QW
     Dates: start: 20131114, end: 20131220
  3. RIBAVIRIN [Suspect]
     Indication: HEPATITIS C
     Dosage: 1 DF, BID
     Dates: start: 20131114, end: 20131220

REACTIONS (7)
  - Chest pain [Recovered/Resolved]
  - Weight decreased [Recovered/Resolved]
  - Malaise [Not Recovered/Not Resolved]
  - Chills [Recovered/Resolved]
  - Asthenia [Recovered/Resolved]
  - Rash [Recovered/Resolved]
  - Proctalgia [Recovered/Resolved]
